FAERS Safety Report 8595492-0 (Version None)
Quarter: 2012Q3

REPORT INFORMATION
  Report Type: 
  Country: None (occurrence: None)
  Receive Date: 20120815
  Receipt Date: 20120809
  Transmission Date: 20120928
  Serious: Yes (Hospitalization)
  Sender: FDA-Public Use
  Company Number: US-FRI-1000037731

PATIENT
  Sex: Female
  Weight: 45 kg

DRUGS (9)
  1. FLUTICASONE PROPIONATE [Concomitant]
     Indication: CHRONIC OBSTRUCTIVE PULMONARY DISEASE
  2. SPIRIVA [Concomitant]
     Indication: CHRONIC OBSTRUCTIVE PULMONARY DISEASE
  3. MULTI-VITAMINS [Concomitant]
  4. AMLODIPINE [Concomitant]
     Dosage: 2.5 MG
  5. BOOST [Concomitant]
  6. FLONASE [Concomitant]
  7. PROTONIX [Concomitant]
     Indication: ABDOMINAL DISCOMFORT
     Dosage: 40 MG
  8. DALIRESP [Suspect]
     Indication: CHRONIC OBSTRUCTIVE PULMONARY DISEASE
     Dosage: 500 MCG
     Route: 048
     Dates: start: 20120701, end: 20120701
  9. NEBULIZER NOS [Concomitant]

REACTIONS (5)
  - DECREASED APPETITE [None]
  - INSOMNIA [None]
  - PNEUMONIA [None]
  - RASH PRURITIC [None]
  - WEIGHT DECREASED [None]
